FAERS Safety Report 12785999 (Version 10)
Quarter: 2018Q2

REPORT INFORMATION
  Report Type: Report from Study
  Country: DE (occurrence: DE)
  Receive Date: 20160927
  Receipt Date: 20180522
  Transmission Date: 20180711
  Serious: Yes (Death, Hospitalization, Other)
  Sender: FDA-Public Use
  Company Number: PHHY2016DE121373

PATIENT
  Age: 78 Year
  Sex: Female

DRUGS (10)
  1. NOVAMINSULFON [Concomitant]
     Active Substance: METAMIZOLE
     Indication: PRODUCT USED FOR UNKNOWN INDICATION
     Dosage: 500 MG, (UP TO 4X30 DROPS DAILY)
     Route: 065
     Dates: start: 20140826
  2. AROMASIN [Suspect]
     Active Substance: EXEMESTANE
     Indication: BREAST CANCER METASTATIC
     Dosage: 25 MG, QD
     Route: 048
     Dates: start: 20160721, end: 20160901
  3. ALLOPURINOL. [Concomitant]
     Active Substance: ALLOPURINOL
     Indication: PRODUCT USED FOR UNKNOWN INDICATION
     Dosage: 150 MG, QD
     Route: 065
     Dates: start: 20140801, end: 20160819
  4. AMLODIPINE [Concomitant]
     Active Substance: AMLODIPINE BESYLATE
     Indication: PRODUCT USED FOR UNKNOWN INDICATION
     Dosage: 10 MG, QD
     Route: 065
     Dates: start: 2014, end: 20160819
  5. METFORMIN [Concomitant]
     Active Substance: METFORMIN HYDROCHLORIDE
     Indication: PRODUCT USED FOR UNKNOWN INDICATION
     Dosage: 500 MG, QD
     Route: 065
     Dates: start: 20140801
  6. XIPAMIDE [Concomitant]
     Active Substance: XIPAMIDE
     Indication: PRODUCT USED FOR UNKNOWN INDICATION
     Dosage: 10 MG, QD
     Route: 065
     Dates: start: 2014
  7. CALCIMAGON [Concomitant]
     Active Substance: CALCIUM
     Indication: PRODUCT USED FOR UNKNOWN INDICATION
     Dosage: QD
     Route: 065
     Dates: start: 20150707
  8. CALCIUM [Concomitant]
     Active Substance: CALCIUM
     Indication: PRODUCT USED FOR UNKNOWN INDICATION
     Route: 065
  9. AFINITOR [Suspect]
     Active Substance: EVEROLIMUS
     Indication: BREAST CANCER METASTATIC
     Dosage: 5 MG, QD
     Route: 048
     Dates: start: 20160721, end: 20160901
  10. VALSARTAN. [Concomitant]
     Active Substance: VALSARTAN
     Indication: PRODUCT USED FOR UNKNOWN INDICATION
     Dosage: 160 MG, QD
     Route: 065
     Dates: start: 201607, end: 20160819

REACTIONS (31)
  - Asthenia [Not Recovered/Not Resolved]
  - Aortic valve sclerosis [Unknown]
  - C-reactive protein increased [Fatal]
  - Stress cardiomyopathy [Not Recovered/Not Resolved]
  - Cardiac failure [Not Recovered/Not Resolved]
  - Myocardial infarction [Not Recovered/Not Resolved]
  - Troponin I increased [Unknown]
  - Fibrin D dimer increased [Unknown]
  - Blood calcium decreased [Unknown]
  - White blood cell count increased [Unknown]
  - Blood creatinine increased [Unknown]
  - Blood lactate dehydrogenase increased [Unknown]
  - Cough [Unknown]
  - Hypotension [Recovered/Resolved]
  - Anaemia [Recovered/Resolved]
  - Mitral valve sclerosis [Unknown]
  - Infection [Unknown]
  - Heart valve incompetence [Unknown]
  - Pleural effusion [Unknown]
  - Oedema [Unknown]
  - Blood potassium decreased [Recovered/Resolved]
  - Platelet count decreased [Unknown]
  - Dyspnoea [Fatal]
  - Tachyarrhythmia [Unknown]
  - Activated partial thromboplastin time prolonged [Unknown]
  - Pneumonia [Fatal]
  - Lung infiltration [Fatal]
  - Pulmonary arterial pressure decreased [Unknown]
  - Orthopnoea [Unknown]
  - Oedema peripheral [Unknown]
  - Nausea [Unknown]

NARRATIVE: CASE EVENT DATE: 20160819
